FAERS Safety Report 8610199-9 (Version None)
Quarter: 2012Q3

REPORT INFORMATION
  Report Type: 
  Country: None (occurrence: None)
  Receive Date: 20120822
  Receipt Date: 20120815
  Transmission Date: 20120928
  Serious: No
  Sender: FDA-Public Use
  Company Number: US-BIOGENIDEC-2012BI031902

PATIENT
  Age: 49 Year
  Sex: Female

DRUGS (1)
  1. AVONEX [Suspect]
     Indication: MULTIPLE SCLEROSIS
     Route: 030
     Dates: start: 20100506

REACTIONS (7)
  - INFLUENZA LIKE ILLNESS [None]
  - FEELING ABNORMAL [None]
  - DISORIENTATION [None]
  - FRUSTRATION [None]
  - HOT FLUSH [None]
  - DRUG DOSE OMISSION [None]
  - ANXIETY [None]
